FAERS Safety Report 8392627-X (Version None)
Quarter: 2012Q2

REPORT INFORMATION
  Report Type: 
  Country: None (occurrence: None)
  Receive Date: 20120525
  Receipt Date: 20120525
  Transmission Date: 20120825
  Serious: Yes (Other)
  Sender: FDA-Public Use
  Company Number: None

PATIENT
  Age: 73 Year
  Sex: Female
  Weight: 63.05 kg

DRUGS (2)
  1. CYMBALTA [Suspect]
     Indication: DEPRESSION
     Dosage: 20 MG ONCE A DAY PO
     Route: 048
     Dates: start: 20120312, end: 20120417
  2. CYMBALTA [Suspect]
     Indication: ARTHRALGIA
     Dosage: 20 MG ONCE A DAY PO
     Route: 048
     Dates: start: 20120312, end: 20120417

REACTIONS (1)
  - INSOMNIA [None]
